FAERS Safety Report 5909240-3 (Version None)
Quarter: 2008Q4

REPORT INFORMATION
  Report Type: 
  Country: None (occurrence: None)
  Receive Date: 20081006
  Receipt Date: 20081001
  Transmission Date: 20090506
  Serious: Yes (Life-Threatening, Hospitalization)
  Sender: FDA-Public Use
  Company Number: PHHY2008ZA23237

PATIENT
  Age: 6 Year
  Sex: Female

DRUGS (2)
  1. RITALIN [Suspect]
     Indication: PSYCHOMOTOR HYPERACTIVITY
     Dosage: UNK
     Dates: start: 20070101
  2. RISPERDAL [Suspect]
     Indication: PSYCHOMOTOR HYPERACTIVITY
     Dosage: 0.8ML DAILY DOSE
     Dates: start: 20071201

REACTIONS (2)
  - APPARENT LIFE THREATENING EVENT [None]
  - BRONCHOPNEUMONIA [None]
